FAERS Safety Report 8809637 (Version 3)
Quarter: 2014Q3

REPORT INFORMATION
  Report Type: Report from Study
  Country: US (occurrence: US)
  Receive Date: 20120926
  Receipt Date: 20140902
  Transmission Date: 20150326
  Serious: Yes (Death)
  Sender: FDA-Public Use
  Company Number: US-ROCHE-1129571

PATIENT
  Age: 60 Year
  Sex: Male
  Weight: 68.5 kg

DRUGS (4)
  1. AVASTIN [Suspect]
     Active Substance: BEVACIZUMAB
     Indication: BRAIN NEOPLASM MALIGNANT
     Route: 065
     Dates: start: 20070907, end: 20071105
  2. AVASTIN [Suspect]
     Active Substance: BEVACIZUMAB
     Indication: GLIOBLASTOMA
     Route: 042
  3. DECADRON [Concomitant]
     Active Substance: DEXAMETHASONE
  4. CARBOPLATIN. [Concomitant]
     Active Substance: CARBOPLATIN

REACTIONS (17)
  - Hiccups [Not Recovered/Not Resolved]
  - Confusional state [Not Recovered/Not Resolved]
  - General physical health deterioration [Unknown]
  - Nausea [Not Recovered/Not Resolved]
  - Fatigue [Unknown]
  - Constipation [Unknown]
  - Malaise [Unknown]
  - Hypersomnia [Unknown]
  - Muscular weakness [Not Recovered/Not Resolved]
  - Anoxia [Unknown]
  - Depression [Unknown]
  - Vomiting [Not Recovered/Not Resolved]
  - Night sweats [Unknown]
  - Gait disturbance [Not Recovered/Not Resolved]
  - Neoplasm progression [Fatal]
  - Rash [Unknown]
  - Off label use [Unknown]

NARRATIVE: CASE EVENT DATE: 20071204
